FAERS Safety Report 13591852 (Version 1)
Quarter: 2017Q2

REPORT INFORMATION
  Report Type: Spontaneous
  Country: DE (occurrence: DE)
  Receive Date: 20170530
  Receipt Date: 20170530
  Transmission Date: 20170830
  Serious: Yes (Other)
  Sender: FDA-Public Use
  Company Number: DE-PFIZER INC-2017102963

PATIENT
  Age: 55 Year
  Sex: Female

DRUGS (8)
  1. TOVIAZ [Suspect]
     Active Substance: FESOTERODINE FUMARATE
     Dosage: 0.5 DF, 2X/DAY
     Dates: start: 20170116
  2. TOVIAZ [Suspect]
     Active Substance: FESOTERODINE FUMARATE
     Dosage: 4 MG, 2X/DAY
     Dates: start: 201610
  3. L-THYROX 112 [Concomitant]
     Dosage: UNK
     Dates: start: 2009
  4. VELMETIA [Concomitant]
     Active Substance: METFORMIN\SITAGLIPTIN
     Dosage: 50 MG/1000 MG
     Dates: start: 201601
  5. TOVIAZ [Suspect]
     Active Substance: FESOTERODINE FUMARATE
     Indication: INCONTINENCE
     Dosage: 4 MG, 1X/DAY
     Dates: start: 201510
  6. TOVIAZ [Suspect]
     Active Substance: FESOTERODINE FUMARATE
     Dosage: 8 MG, 1X/DAY
     Dates: start: 20170307, end: 20170403
  7. PALEXIA [Concomitant]
     Active Substance: TAPENTADOL HYDROCHLORIDE
     Dosage: 50 MG, UNK
     Dates: start: 20161101, end: 20161110
  8. SIMVASTATIN. [Concomitant]
     Active Substance: SIMVASTATIN
     Dosage: 20 MG, UNK
     Dates: start: 2009

REACTIONS (22)
  - Dysgeusia [Recovered/Resolved]
  - Eructation [Not Recovered/Not Resolved]
  - Bladder pain [Unknown]
  - Dry mouth [Recovered/Resolved]
  - Diarrhoea [Not Recovered/Not Resolved]
  - Lip disorder [Recovering/Resolving]
  - Abdominal pain upper [Recovered/Resolved]
  - Pruritus [Not Recovered/Not Resolved]
  - Cough [Not Recovered/Not Resolved]
  - Dry eye [Recovered/Resolved]
  - Dyspepsia [Recovered/Resolved]
  - Nasal dryness [Recovered/Resolved]
  - Drug effect incomplete [Not Recovered/Not Resolved]
  - Abdominal distension [Not Recovered/Not Resolved]
  - Visual impairment [Recovered/Resolved]
  - Product use issue [Unknown]
  - Fatigue [Not Recovered/Not Resolved]
  - Dry skin [Not Recovered/Not Resolved]
  - Wrong technique in product usage process [Unknown]
  - Oropharyngeal pain [Not Recovered/Not Resolved]
  - Dysphagia [Recovering/Resolving]
  - Oral mucosal exfoliation [Not Recovered/Not Resolved]

NARRATIVE: CASE EVENT DATE: 201601
